FAERS Safety Report 4749576-5 (Version None)
Quarter: 2005Q3

REPORT INFORMATION
  Report Type: 
  Country: None (occurrence: None)
  Receive Date: 20050822
  Receipt Date: 20050504
  Transmission Date: 20060218
  Serious: Yes (Other)
  Sender: FDA-Public Use
  Company Number: GB-GLAXOSMITHKLINE-B0380366A

PATIENT
  Sex: Female

DRUGS (1)
  1. SEROXAT [Suspect]
     Route: 065
     Dates: start: 20020101

REACTIONS (6)
  - ANXIETY [None]
  - BIPOLAR I DISORDER [None]
  - DEPRESSION [None]
  - ILL-DEFINED DISORDER [None]
  - MOOD SWINGS [None]
  - SUICIDAL IDEATION [None]
